FAERS Safety Report 15544031 (Version 1)
Quarter: 2018Q4

REPORT INFORMATION
  Report Type: Spontaneous
  Country: US (occurrence: US)
  Receive Date: 20181023
  Receipt Date: 20181023
  Transmission Date: 20190205
  Serious: No
  Sender: FDA-Public Use
  Company Number: US-SHIRE-US201840429

PATIENT
  Sex: Female

DRUGS (1)
  1. GAMMAGARD LIQUID [Suspect]
     Active Substance: HUMAN IMMUNOGLOBULIN G
     Indication: DERMATOMYOSITIS
     Dosage: 20 G, UNK
     Route: 042

REACTIONS (6)
  - Dysphagia [Unknown]
  - Constipation [Unknown]
  - Nausea [Unknown]
  - Back pain [Unknown]
  - Dizziness [Unknown]
  - Dyspnoea [Unknown]
